FAERS Safety Report 5633626-8 (Version None)
Quarter: 2008Q1

REPORT INFORMATION
  Report Type: 
  Country: None (occurrence: None)
  Receive Date: 20080221
  Receipt Date: 20080214
  Transmission Date: 20080703
  Serious: Yes (Other)
  Sender: FDA-Public Use
  Company Number: US-PFIZER INC-2008014465

PATIENT
  Sex: Female
  Weight: 56.7 kg

DRUGS (3)
  1. DEPO-PROVERA SUSPENSION/INJ [Suspect]
     Indication: CONTRACEPTION
     Dosage: FREQ:LAST INJECTION
     Dates: start: 20070901, end: 20070901
  2. NORPLANT [Concomitant]
  3. XANAX [Concomitant]
     Indication: ANXIETY

REACTIONS (6)
  - BREAST ENLARGEMENT [None]
  - BREAST PAIN [None]
  - DEPRESSED MOOD [None]
  - EMOTIONAL DISORDER [None]
  - HAEMORRHOIDS [None]
  - OSTEOPENIA [None]
